FAERS Safety Report 4587074-2 (Version None)
Quarter: 2005Q1

REPORT INFORMATION
  Report Type: 
  Country: None (occurrence: None)
  Receive Date: 20050218
  Receipt Date: 20041023
  Transmission Date: 20050727
  Serious: Yes (Other)
  Sender: FDA-Public Use
  Company Number: PHBS2004BR14196

PATIENT
  Age: 17 Year
  Sex: Male
  Weight: 68 kg

DRUGS (2)
  1. FLOTAC [Suspect]
     Indication: JOINT SPRAIN
     Dosage: 70 MG/DAY
     Route: 048
     Dates: start: 20041020, end: 20041020
  2. FLOTAC [Suspect]
     Dosage: 70 MG/DAY
     Route: 048
     Dates: start: 20041021, end: 20041021

REACTIONS (3)
  - CONVULSION [None]
  - DIZZINESS [None]
  - TINNITUS [None]
